FAERS Safety Report 9607417 (Version 2)
Quarter: 2013Q4

REPORT INFORMATION
  Report Type: Spontaneous
  Country: US (occurrence: None)
  Receive Date: 20131007
  Receipt Date: 20131112
  Transmission Date: 20140711
  Serious: Yes (Other)
  Sender: FDA-Public Use
  Company Number: 1309-1248

PATIENT
  Age: 86 Year
  Sex: Male
  Weight: 80.74 kg

DRUGS (6)
  1. EYLEA [Suspect]
     Indication: AGE-RELATED MACULAR DEGENERATION
     Dosage: 2 MG, 1 IN 6 WK, INTRAVITREAL
     Dates: start: 20130402
  2. ALPHAGAN (BRIMONIDINE TARTRATE) [Concomitant]
  3. LATANOPROST (LATANOPROST) (NONE) [Concomitant]
  4. SPIRIVA (TIOTROPIUM BROMIDE) [Concomitant]
  5. ADVAIR (SERETIDE) [Concomitant]
  6. PROSTATE MEDICATION [Concomitant]

REACTIONS (11)
  - Diplopia [None]
  - Hypersensitivity [None]
  - Infection [None]
  - Photophobia [None]
  - Corneal scar [None]
  - Eye infection [None]
  - Vision blurred [None]
  - Cataract operation [None]
  - Drug hypersensitivity [None]
  - Vitritis [None]
  - Uveitis [None]
